FAERS Safety Report 24794950 (Version 1)
Quarter: 2024Q4

REPORT INFORMATION
  Report Type: Spontaneous
  Country: ES (occurrence: ES)
  Receive Date: 20241231
  Receipt Date: 20241231
  Transmission Date: 20250115
  Serious: Yes (Other)
  Sender: MYLAN
  Company Number: ES-PFIZER INC-PV202400162767

PATIENT
  Age: 93 Year
  Sex: Female

DRUGS (4)
  1. LINEZOLID [Suspect]
     Active Substance: LINEZOLID
     Indication: Staphylococcal bacteraemia
     Dosage: 1200 MILLIGRAM, QD,(DAILY)
     Route: 065
  2. CEFTAROLINE FOSAMIL [Suspect]
     Active Substance: CEFTAROLINE FOSAMIL
     Indication: Staphylococcal bacteraemia
     Dosage: 1800 MILLIGRAM, QD,(DAILY)
     Route: 065
  3. DAPTOMYCIN [Suspect]
     Active Substance: DAPTOMYCIN
     Indication: Staphylococcal bacteraemia
     Dosage: 500 MILLIGRAM, QD,(DAILY)
     Route: 065
  4. DALBAVANCIN [Suspect]
     Active Substance: DALBAVANCIN
     Indication: Staphylococcal bacteraemia
     Dosage: 1500 MILLIGRAM, QD,(DAILY)
     Route: 065

REACTIONS (1)
  - Hepatotoxicity [Unknown]
